FAERS Safety Report 19297475 (Version 1)
Quarter: 2021Q2

REPORT INFORMATION
  Report Type: Spontaneous
  Country: CN (occurrence: CN)
  Receive Date: 20210524
  Receipt Date: 20210524
  Transmission Date: 20210717
  Serious: Yes (Other)
  Sender: FDA-Public Use
  Company Number: CN-BAXTER-2021BAX012196

PATIENT
  Age: 64 Year
  Sex: Female
  Weight: 54 kg

DRUGS (7)
  1. 20% MANNITOL INJECTION [Suspect]
     Active Substance: MANNITOL
     Indication: ANTIINFLAMMATORY THERAPY
  2. SODIUM CHLORIDE. [Suspect]
     Active Substance: SODIUM CHLORIDE
     Indication: MEDICATION DILUTION
     Route: 041
     Dates: start: 20210411, end: 20210411
  3. SODIUM AESCINATE [Suspect]
     Active Substance: SODIUM ESCINATE
     Indication: DRUG THERAPY
     Route: 041
     Dates: start: 20210411, end: 20210411
  4. 20% MANNITOL INJECTION [Suspect]
     Active Substance: MANNITOL
     Indication: DEHYDRATION
  5. 20% MANNITOL INJECTION [Suspect]
     Active Substance: MANNITOL
     Indication: SWELLING
     Route: 041
     Dates: start: 20210411, end: 20210411
  6. 20% MANNITOL INJECTION [Suspect]
     Active Substance: MANNITOL
     Indication: DRUG THERAPY
  7. SODIUM AESCINATE [Suspect]
     Active Substance: SODIUM ESCINATE
     Indication: ANTIINFLAMMATORY THERAPY

REACTIONS (1)
  - Rash pruritic [Recovering/Resolving]

NARRATIVE: CASE EVENT DATE: 20210411
